FAERS Safety Report 12372727 (Version 1)
Quarter: 2016Q2

REPORT INFORMATION
  Report Type: Spontaneous
  Country: US (occurrence: US)
  Receive Date: 20160516
  Receipt Date: 20160516
  Transmission Date: 20160815
  Serious: Yes (Other)
  Sender: FDA-Public Use
  Company Number: US-BAYER-2016-091442

PATIENT
  Age: 27 Year
  Sex: Male

DRUGS (4)
  1. SALMETEROL [Concomitant]
     Active Substance: SALMETEROL
     Route: 055
  2. ACETYLSALICYLIC ACID (} 100 MG) [Suspect]
     Active Substance: ASPIRIN
  3. ALBUTEROL. [Concomitant]
     Active Substance: ALBUTEROL
  4. FLUTICASONE [Concomitant]
     Active Substance: FLUTICASONE\FLUTICASONE PROPIONATE
     Route: 055

REACTIONS (2)
  - Respiratory distress [None]
  - Bronchospasm [None]
